FAERS Safety Report 7749975-3 (Version None)
Quarter: 2011Q3

REPORT INFORMATION
  Report Type: 
  Country: None (occurrence: None)
  Receive Date: 20110912
  Receipt Date: 20110902
  Transmission Date: 20111222
  Serious: Yes (Life-Threatening, Hospitalization, Disabling)
  Sender: FDA-Public Use
  Company Number: 2011SP025400

PATIENT
  Age: 48 Year
  Sex: Female

DRUGS (9)
  1. OMEPRAZOLE [Concomitant]
  2. SEROQUEL [Concomitant]
  3. VITAMIN D [Concomitant]
  4. SAPHRIS [Suspect]
     Indication: BIPOLAR DISORDER
     Dosage: 5 MG;BID;SL
     Route: 060
     Dates: start: 20110418, end: 20110505
  5. TRAZODONE HYDROCHLORIDE [Concomitant]
  6. CELEXA [Concomitant]
  7. INDOMETHACIN [Concomitant]
  8. PHENERGAN HCL [Concomitant]
  9. VISTARIL [Concomitant]

REACTIONS (7)
  - DRUG HYPERSENSITIVITY [None]
  - CARDIAC FAILURE CONGESTIVE [None]
  - DYSPNOEA [None]
  - CHEST PAIN [None]
  - WEIGHT INCREASED [None]
  - PULMONARY OEDEMA [None]
  - ANGIOEDEMA [None]
